FAERS Safety Report 5363731-5 (Version None)
Quarter: 2007Q2

REPORT INFORMATION
  Report Type: 
  Country: None (occurrence: None)
  Receive Date: 20070618
  Receipt Date: 20070618
  Transmission Date: 20071010
  Serious: No
  Sender: FDA-Public Use
  Company Number: None

PATIENT
  Age: 58 Year
  Sex: Male
  Weight: 135.1719 kg

DRUGS (1)
  1. CLOPIDOGREL BISULFATE [Suspect]
     Indication: ANGIOPATHY
     Dosage: 1 TABLET DAILY PO
     Route: 048
     Dates: start: 20030107, end: 20060104

REACTIONS (2)
  - ERYTHEMA [None]
  - GASTRITIS [None]
